FAERS Safety Report 10515386 (Version 1)
Quarter: 2014Q4

REPORT INFORMATION
  Report Type: Spontaneous
  Country: US (occurrence: None)
  Receive Date: 20141009
  Receipt Date: 20141009
  Transmission Date: 20150528
  Serious: Yes (Death)
  Sender: FDA-Public Use
  Company Number: INS201409-000209

PATIENT
  Age: 49 Year
  Sex: Female

DRUGS (1)
  1. SUBSYS [Suspect]
     Active Substance: FENTANYL
     Route: 060

REACTIONS (1)
  - Death [None]

NARRATIVE: CASE EVENT DATE: 20140606
